FAERS Safety Report 21059408 (Version 2)
Quarter: 2022Q3

REPORT INFORMATION
  Report Type: Spontaneous
  Country: GB (occurrence: GB)
  Receive Date: 20220708
  Receipt Date: 20220923
  Transmission Date: 20221027
  Serious: Yes (Other)
  Sender: FDA-Public Use
  Company Number: GB-BAXTER-2022BAX013731

PATIENT
  Age: 61 Year

DRUGS (5)
  1. SODIUM CHLORIDE [Suspect]
     Active Substance: SODIUM CHLORIDE
     Indication: Medication dilution
     Dosage: UNK
     Route: 065
     Dates: start: 20220622
  2. SODIUM CHLORIDE [Suspect]
     Active Substance: SODIUM CHLORIDE
     Dosage: UNK
     Route: 065
     Dates: start: 20220622
  3. SODIUM CHLORIDE [Suspect]
     Active Substance: SODIUM CHLORIDE
     Dosage: 277 ML
     Route: 042
     Dates: start: 20220622, end: 20220622
  4. PACLITAXEL [Suspect]
     Active Substance: PACLITAXEL
     Indication: Chemotherapy
     Dosage: 144 MG
     Route: 065
     Dates: start: 20220622
  5. PACLITAXEL [Suspect]
     Active Substance: PACLITAXEL
     Indication: Adverse drug reaction
     Dosage: 162 MG
     Route: 042
     Dates: start: 20220622, end: 20220622

REACTIONS (5)
  - Adverse drug reaction [Unknown]
  - Loss of consciousness [Unknown]
  - Dyspnoea [Unknown]
  - Erythema [Unknown]
  - Hypotension [Unknown]

NARRATIVE: CASE EVENT DATE: 20220622
